FAERS Safety Report 9773141 (Version 1)
Quarter: 2013Q4

REPORT INFORMATION
  Report Type: Spontaneous
  Country: US (occurrence: None)
  Receive Date: 20131217
  Receipt Date: 20131217
  Transmission Date: 20140711
  Serious: Yes (Hospitalization)
  Sender: FDA-Public Use
  Company Number: 1988708

PATIENT
  Age: 21 Day
  Sex: Male
  Weight: 2.72 kg

DRUGS (1)
  1. BUPIVACAINE HCL [Suspect]
     Indication: LOCAL ANAESTHESIA
     Route: 042

REACTIONS (6)
  - Lethargy [None]
  - Strabismus [None]
  - Hypotonia [None]
  - Somnolence [None]
  - Feeding disorder neonatal [None]
  - Altered state of consciousness [None]
